FAERS Safety Report 17335825 (Version 2)
Quarter: 2020Q2

REPORT INFORMATION
  Report Type: Report from Study
  Country: CO (occurrence: CO)
  Receive Date: 20200128
  Receipt Date: 20200629
  Transmission Date: 20200713
  Serious: Yes (Hospitalization)
  Sender: FDA-Public Use
  Company Number: CO-ELI_LILLY_AND_COMPANY-CO201906013469

PATIENT
  Age: 67 Year
  Sex: Female

DRUGS (7)
  1. VITAMIN D3 [Concomitant]
     Active Substance: CHOLECALCIFEROL
     Indication: VITAMIN D DEFICIENCY
     Dosage: ONE DOSE EVERY TWO DAYS
  2. HISTIVERT [Suspect]
     Active Substance: BETAHISTINE HYDROCHLORIDE
     Indication: TINNITUS
     Dosage: UNK, UNKNOWN
     Route: 065
  3. TERIPARATIDE [Suspect]
     Active Substance: TERIPARATIDE
     Indication: OSTEOPOROSIS
     Dosage: 20 UG, DAILY
     Route: 058
     Dates: start: 20180523, end: 201911
  4. DEFEROL [Concomitant]
     Indication: PRODUCT USED FOR UNKNOWN INDICATION
     Dosage: UNK UNK, DAILY
     Route: 065
  5. NIDIP [Suspect]
     Active Substance: NIMODIPINE
     Indication: TINNITUS
     Dosage: UNK, UNKNOWN
     Route: 065
  6. CITRAGEL [Concomitant]
     Indication: VITAMIN D DEFICIENCY
     Dosage: UNK, DAILY
  7. TIZANIDINE. [Suspect]
     Active Substance: TIZANIDINE
     Indication: TINNITUS
     Dosage: UNK, UNKNOWN
     Route: 065

REACTIONS (30)
  - Tinnitus [Not Recovered/Not Resolved]
  - Malaise [Not Recovered/Not Resolved]
  - Feeling of despair [Not Recovered/Not Resolved]
  - Injection site haemorrhage [Not Recovered/Not Resolved]
  - Hypoaesthesia [Not Recovered/Not Resolved]
  - Dyspnoea [Not Recovered/Not Resolved]
  - Anxiety [Not Recovered/Not Resolved]
  - Nausea [Recovered/Resolved]
  - Pain [Not Recovered/Not Resolved]
  - Dysuria [Not Recovered/Not Resolved]
  - Feeling hot [Not Recovered/Not Resolved]
  - Bacterial test [Not Recovered/Not Resolved]
  - Back pain [Not Recovered/Not Resolved]
  - Head discomfort [Recovered/Resolved]
  - Feeling abnormal [Recovered/Resolved]
  - Agitation [Not Recovered/Not Resolved]
  - Chest discomfort [Not Recovered/Not Resolved]
  - Musculoskeletal pain [Recovered/Resolved]
  - Somnolence [Not Recovered/Not Resolved]
  - Adnexa uteri pain [Not Recovered/Not Resolved]
  - Cystitis [Not Recovered/Not Resolved]
  - Nephrolithiasis [Not Recovered/Not Resolved]
  - Blood pressure decreased [Not Recovered/Not Resolved]
  - Paraesthesia [Recovered/Resolved]
  - Feeling hot [Recovered/Resolved]
  - Pain in extremity [Not Recovered/Not Resolved]
  - Influenza [Not Recovered/Not Resolved]
  - Vomiting [Recovered/Resolved]
  - Diarrhoea [Recovered/Resolved]
  - Heart rate increased [Not Recovered/Not Resolved]

NARRATIVE: CASE EVENT DATE: 201901
